FAERS Safety Report 9373236 (Version 1)
Quarter: 2013Q2

REPORT INFORMATION
  Report Type: Spontaneous
  Country: SE (occurrence: SE)
  Receive Date: 20130627
  Receipt Date: 20130627
  Transmission Date: 20140414
  Serious: Yes (Other)
  Sender: FDA-Public Use
  Company Number: SE-ABBOTT-13X-150-1110695-00

PATIENT
  Age: 49 Year
  Sex: Female

DRUGS (12)
  1. ERGENYL [Suspect]
     Indication: BIPOLAR DISORDER
     Route: 048
     Dates: start: 2010
  2. ERGENYL [Suspect]
     Route: 048
     Dates: start: 2011
  3. LITHIUM [Concomitant]
     Indication: PRODUCT USED FOR UNKNOWN INDICATION
     Dates: start: 1988
  4. ZYPREXA [Concomitant]
     Indication: PRODUCT USED FOR UNKNOWN INDICATION
     Dates: start: 2011
  5. CLOZAPINE [Concomitant]
     Indication: PRODUCT USED FOR UNKNOWN INDICATION
     Dates: start: 2007, end: 201107
  6. CITALOPRAM [Concomitant]
     Indication: PRODUCT USED FOR UNKNOWN INDICATION
  7. ORFIRIL [Concomitant]
     Indication: PRODUCT USED FOR UNKNOWN INDICATION
     Dates: start: 201101
  8. HIBERNAL [Concomitant]
     Indication: PRODUCT USED FOR UNKNOWN INDICATION
  9. HALDOL [Concomitant]
     Indication: PRODUCT USED FOR UNKNOWN INDICATION
  10. ZUCLOPENTHIXOL ACETATE [Concomitant]
     Indication: PRODUCT USED FOR UNKNOWN INDICATION
  11. NOZINAN [Concomitant]
     Indication: PRODUCT USED FOR UNKNOWN INDICATION
  12. RISPERDAL [Concomitant]
     Indication: PRODUCT USED FOR UNKNOWN INDICATION
     Dates: start: 1998, end: 2007

REACTIONS (7)
  - Osteoarthritis [Unknown]
  - Off label use [Unknown]
  - Mobility decreased [Unknown]
  - Deep vein thrombosis [Unknown]
  - Musculoskeletal stiffness [Unknown]
  - Tremor [Unknown]
  - Fatigue [Unknown]
